FAERS Safety Report 6126505-3 (Version None)
Quarter: 2009Q1

REPORT INFORMATION
  Report Type: 
  Country: None (occurrence: None)
  Receive Date: 20090320
  Receipt Date: 20090310
  Transmission Date: 20090719
  Serious: Yes (Other)
  Sender: FDA-Public Use
  Company Number: GB-PFIZER INC-2009184261

PATIENT

DRUGS (5)
  1. NICOTINE [Suspect]
     Route: 002
  2. NICORETTE [Suspect]
     Indication: SMOKING CESSATION THERAPY
     Route: 062
  3. NICORETTE [Suspect]
     Indication: SMOKING CESSATION THERAPY
  4. NICOTINE [Suspect]
     Indication: SMOKING CESSATION THERAPY
  5. DRUG, UNSPECIFIED [Concomitant]

REACTIONS (3)
  - APPLICATION SITE PRURITUS [None]
  - CHRONIC OBSTRUCTIVE PULMONARY DISEASE [None]
  - DRUG INEFFECTIVE [None]
